FAERS Safety Report 5796749-9 (Version None)
Quarter: 2008Q3

REPORT INFORMATION
  Report Type: 
  Country: None (occurrence: None)
  Receive Date: 20080701
  Receipt Date: 20080619
  Transmission Date: 20090109
  Serious: Yes (Hospitalization)
  Sender: FDA-Public Use
  Company Number: FR-GILEAD-2008-0017085

PATIENT
  Sex: Female

DRUGS (5)
  1. VIREAD [Suspect]
     Indication: HIV INFECTION
     Route: 048
     Dates: start: 20080326, end: 20080509
  2. KALETRA [Suspect]
     Indication: HIV INFECTION
     Route: 048
     Dates: start: 20080326, end: 20080509
  3. ISENSTRESS [Suspect]
     Indication: HIV INFECTION
     Route: 048
     Dates: start: 20080326, end: 20080509
  4. PRIMPERAN TAB [Concomitant]
  5. FOLIC ACID [Concomitant]

REACTIONS (2)
  - PANCYTOPENIA [None]
  - PNEUMOCYSTIS JIROVECI PNEUMONIA [None]
